FAERS Safety Report 24206425 (Version 1)
Quarter: 2024Q3

REPORT INFORMATION
  Report Type: Spontaneous
  Country: ZA (occurrence: None)
  Receive Date: 20240813
  Receipt Date: 20240813
  Transmission Date: 20241017
  Serious: Yes (Other)
  Sender: ASTRAZENECA
  Company Number: 2024A177692

PATIENT
  Age: 63 Year
  Sex: Male

DRUGS (4)
  1. DAPAGLIFLOZIN PROPANEDIOL [Suspect]
     Active Substance: DAPAGLIFLOZIN PROPANEDIOL
     Indication: Type 2 diabetes mellitus
     Route: 048
  2. RIVAROXABAN [Concomitant]
     Active Substance: RIVAROXABAN
     Indication: Blood test
  3. INSPRA [Concomitant]
     Active Substance: EPLERENONE
     Indication: Cardiac failure
  4. ATORVASTATIN [Concomitant]
     Active Substance: ATORVASTATIN
     Indication: Blood cholesterol

REACTIONS (2)
  - Neoplasm malignant [Unknown]
  - Illness [Unknown]
